FAERS Safety Report 12396667 (Version 1)
Quarter: 2016Q2

REPORT INFORMATION
  Report Type: Spontaneous
  Country: US (occurrence: None)
  Receive Date: 20160523
  Receipt Date: 20160523
  Transmission Date: 20160815
  Serious: No
  Sender: FDA-Public Use
  Company Number: None

PATIENT
  Age: 69 Year
  Sex: Female
  Weight: 81.65 kg

DRUGS (11)
  1. IMITREX [Concomitant]
     Active Substance: SUMATRIPTAN SUCCINATE
  2. VITAMIN C [Concomitant]
     Active Substance: ASCORBIC ACID
  3. SINUSALIA [Concomitant]
  4. FLOVENT [Concomitant]
     Active Substance: FLUTICASONE PROPIONATE
  5. EXCEDRIN [Concomitant]
     Active Substance: ACETAMINOPHEN\ASPIRIN\CAFFEINE
  6. SABADIL [Concomitant]
  7. BENADRYL [Concomitant]
     Active Substance: DIPHENHYDRAMINE HYDROCHLORIDE
  8. FLONASE [Concomitant]
     Active Substance: FLUTICASONE PROPIONATE
  9. SULFAMETHOXAZOLE/TMP 800/160MG T, 160 MG VISTA [Suspect]
     Active Substance: SULFAMETHOXAZOLE\TRIMETHOPRIM
     Indication: SINUSITIS
     Dosage: 14 TABLET(S) TWICE A DAY TAKEN BY MOUTH
     Route: 048
     Dates: start: 20160517, end: 20160518
  10. LEVOXYL [Concomitant]
     Active Substance: LEVOTHYROXINE SODIUM
  11. BYSTOLIC [Concomitant]
     Active Substance: NEBIVOLOL HYDROCHLORIDE

REACTIONS (12)
  - Lip blister [None]
  - Tongue blistering [None]
  - Cheilitis [None]
  - Lip discolouration [None]
  - Odynophagia [None]
  - Swelling face [None]
  - Product substitution issue [None]
  - Oral mucosal blistering [None]
  - Dysphagia [None]
  - Urticaria [None]
  - Oropharyngeal pain [None]
  - Lip swelling [None]

NARRATIVE: CASE EVENT DATE: 20160517
